FAERS Safety Report 8193254-X (Version None)
Quarter: 2012Q1

REPORT INFORMATION
  Report Type: 
  Country: None (occurrence: None)
  Receive Date: 20120308
  Receipt Date: 20120305
  Transmission Date: 20120608
  Serious: Yes (Other)
  Sender: FDA-Public Use
  Company Number: US-BAYER-2012-021933

PATIENT
  Age: 80 Year
  Sex: Male
  Weight: 76 kg

DRUGS (1)
  1. ASPIRIN [Suspect]
     Dosage: 4 DF, UNK
     Route: 048
     Dates: start: 20120304

REACTIONS (1)
  - HAEMATOCHEZIA [None]
